FAERS Safety Report 4852828-1 (Version None)
Quarter: 2005Q4

REPORT INFORMATION
  Report Type: 
  Country: None (occurrence: None)
  Receive Date: 20051212
  Receipt Date: 20051212
  Transmission Date: 20060501
  Serious: Yes (Hospitalization)
  Sender: FDA-Public Use
  Company Number: None

PATIENT
  Age: 40 Year
  Sex: Female
  Weight: 83.9154 kg

DRUGS (2)
  1. GLEEVEC [Suspect]
     Indication: CARDIAC DISORDER
     Dosage: 400MG BID PO
     Route: 048
     Dates: start: 20030210, end: 20030501
  2. GLEEVEC [Suspect]
     Indication: SARCOMA
     Dosage: 400MG BID PO
     Route: 048
     Dates: start: 20030210, end: 20030501

REACTIONS (5)
  - ASCITES [None]
  - MENTAL STATUS CHANGES [None]
  - METASTASES TO CENTRAL NERVOUS SYSTEM [None]
  - NAUSEA [None]
  - VOMITING [None]
